FAERS Safety Report 12398842 (Version 1)
Quarter: 2016Q2

REPORT INFORMATION
  Report Type: Other
  Country: FR (occurrence: FR)
  Receive Date: 20160524
  Receipt Date: 20160524
  Transmission Date: 20160815
  Serious: Yes (Hospitalization)
  Sender: FDA-Public Use
  Company Number: FR-ASTELLAS-2016US019799

PATIENT
  Age: 47 Year
  Sex: Female

DRUGS (3)
  1. ADVAGRAF [Suspect]
     Active Substance: TACROLIMUS
     Indication: IMMUNOSUPPRESSION
     Dosage: 4 MG, ONCE DAILY (IN MORNING)
     Route: 048
     Dates: start: 2013
  2. ASPEGIC [Concomitant]
     Active Substance: ASPIRIN DL-LYSINE
     Indication: PRODUCT USED FOR UNKNOWN INDICATION
     Dosage: 1/DAY, ONCE DAILY
     Route: 065
  3. CELLCEPT [Suspect]
     Active Substance: MYCOPHENOLATE MOFETIL\MYCOPHENOLATE MOFETIL HYDROCHLORIDE
     Indication: IMMUNOSUPPRESSION
     Dosage: 500 MG, TWICE DAILY (1DF IN MORNING, 1DF IN EVENING))
     Route: 048
     Dates: start: 1988

REACTIONS (6)
  - Headache [Unknown]
  - Diplopia [Not Recovered/Not Resolved]
  - Cholestasis [Unknown]
  - Vertigo [Unknown]
  - Strabismus [Not Recovered/Not Resolved]
  - Cerebrovascular accident [Unknown]

NARRATIVE: CASE EVENT DATE: 20160212
